FAERS Safety Report 11584647 (Version 8)
Quarter: 2015Q4

REPORT INFORMATION
  Report Type: Report from Study
  Country: AU (occurrence: AU)
  Receive Date: 20151001
  Receipt Date: 20151218
  Transmission Date: 20160304
  Serious: Yes (Other)
  Sender: FDA-Public Use
  Company Number: AU-SA-2015SA132188

PATIENT
  Age: 34 Year
  Sex: Female

DRUGS (1)
  1. LEMTRADA [Suspect]
     Active Substance: ALEMTUZUMAB
     Indication: MULTIPLE SCLEROSIS
     Route: 041
     Dates: start: 20150824, end: 20150828

REACTIONS (26)
  - Sensory disturbance [Recovered/Resolved]
  - Pain [Recovered/Resolved]
  - Fatigue [Recovered/Resolved]
  - Ear infection [Recovered/Resolved]
  - Chills [Recovered/Resolved]
  - Infection [Recovered/Resolved]
  - Increased appetite [Recovered/Resolved]
  - Paraesthesia [Recovered/Resolved]
  - Ill-defined disorder [Recovered/Resolved]
  - Platelet aggregation increased [Recovered/Resolved]
  - Platelet count decreased [Recovered/Resolved]
  - Menstrual disorder [Recovered/Resolved]
  - Body temperature increased [Recovered/Resolved]
  - Urinary tract infection [Recovered/Resolved]
  - Dysphemia [Recovered/Resolved]
  - Decreased appetite [Recovered/Resolved]
  - Insomnia [Recovered/Resolved]
  - Contusion [Recovered/Resolved]
  - Malaise [Recovered/Resolved]
  - Mouth haemorrhage [Recovered/Resolved]
  - Loss of consciousness [Recovered/Resolved]
  - Tremor [Recovered/Resolved]
  - Nausea [Recovered/Resolved]
  - Pyrexia [Recovered/Resolved]
  - Skin burning sensation [Recovered/Resolved]
  - Urine analysis abnormal [Recovered/Resolved]

NARRATIVE: CASE EVENT DATE: 201508
